FAERS Safety Report 7511734-4 (Version None)
Quarter: 2011Q2

REPORT INFORMATION
  Report Type: 
  Country: None (occurrence: None)
  Receive Date: 20110531
  Receipt Date: 20110517
  Transmission Date: 20111010
  Serious: Yes (Hospitalization)
  Sender: FDA-Public Use
  Company Number: SK-ELI_LILLY_AND_COMPANY-SK201103008339

PATIENT
  Age: 52 Year
  Sex: Female

DRUGS (3)
  1. CALCIUM CARBONATE [Concomitant]
     Indication: OSTEOPOROSIS
  2. VITAMIN D [Concomitant]
     Indication: OSTEOPOROSIS
  3. FORTEO [Suspect]
     Indication: OSTEOPOROSIS
     Dosage: 20 UG, QD
     Dates: start: 20101116, end: 20110217

REACTIONS (3)
  - FEELING JITTERY [None]
  - INSOMNIA [None]
  - DEPRESSION [None]
